FAERS Safety Report 6243339-X (Version None)
Quarter: 2009Q2

REPORT INFORMATION
  Report Type: 
  Country: None (occurrence: None)
  Receive Date: 20090624
  Receipt Date: 20090618
  Transmission Date: 20091009
  Serious: Yes (Death)
  Sender: FDA-Public Use
  Company Number: JP-MERCK-0906USA01159

PATIENT
  Age: 72 Year
  Sex: Female

DRUGS (4)
  1. STROMECTOL [Suspect]
     Indication: ACARODERMATITIS
     Route: 048
     Dates: start: 20090523, end: 20090523
  2. STROMECTOL [Suspect]
     Route: 048
     Dates: start: 20090529, end: 20090529
  3. MAGNESIUM OXIDE [Concomitant]
     Indication: CONSTIPATION
     Route: 048
     Dates: start: 20090514, end: 20090524
  4. EURAX [Concomitant]
     Route: 061
     Dates: start: 20090522, end: 20090601

REACTIONS (1)
  - CARDIAC FAILURE [None]
